FAERS Safety Report 11248225 (Version 1)
Quarter: 2015Q3

REPORT INFORMATION
  Report Type: Spontaneous
  Country: US (occurrence: None)
  Receive Date: 20150707
  Receipt Date: 20150707
  Transmission Date: 20151125
  Serious: Yes (Hospitalization)
  Sender: FDA-Public Use
  Company Number: None

PATIENT
  Age: 88 Year
  Sex: Male
  Weight: 58.97 kg

DRUGS (3)
  1. LEVAQUIN [Suspect]
     Active Substance: LEVOFLOXACIN
     Indication: URINARY TRACT INFECTION
     Dosage: INTO A VEIN
     Dates: start: 20150702, end: 20150706
  2. RINGERS SOLUTION [Concomitant]
     Active Substance: RINGER^S SOLUTION
  3. MAGNESIUM DRIP [Concomitant]

REACTIONS (1)
  - Delusion [None]

NARRATIVE: CASE EVENT DATE: 20150704
